FAERS Safety Report 6831013-8 (Version None)
Quarter: 2010Q3

REPORT INFORMATION
  Report Type: 
  Country: None (occurrence: None)
  Receive Date: 20100706
  Receipt Date: 20100621
  Transmission Date: 20110219
  Serious: Yes (Death, Life-Threatening, Hospitalization, Other)
  Sender: FDA-Public Use
  Company Number: 2009AC000254

PATIENT
  Age: 80 Year
  Sex: Female

DRUGS (26)
  1. DIGOXIN [Suspect]
     Dosage: .125 MG; QD; PO
     Route: 048
  2. DIGOXIN [Suspect]
     Indication: ATRIAL FIBRILLATION
     Dosage: 0.25 MG; PO
     Route: 048
     Dates: start: 20041123, end: 20041125
  3. DIGOXIN [Suspect]
     Dosage: 0.25 MG; PO
     Route: 048
     Dates: start: 20080331, end: 20080408
  4. DIGOXIN [Suspect]
     Dosage: 0.125 MG; PO
     Route: 048
     Dates: start: 20080411, end: 20080421
  5. ASPIRIN [Concomitant]
  6. ENSURE [Concomitant]
  7. CARVEDILOL [Concomitant]
  8. CIPROFLOXACIN [Concomitant]
  9. LISINOPRIL [Concomitant]
  10. MULTI-VITAMINS [Concomitant]
  11. PLAVIX [Concomitant]
  12. POTASSIUM CHLORIDE [Concomitant]
  13. XENADERM [Concomitant]
  14. TOLNAPTATE [Concomitant]
  15. SIMVASTATIN [Concomitant]
  16. SODIUM CHLORIDE [Concomitant]
  17. ZAROXOLYN [Concomitant]
  18. ALDACTONE [Concomitant]
  19. LIPITOR [Concomitant]
  20. SPIRONOLACTONE [Concomitant]
  21. METOLAZONE [Concomitant]
  22. FUROSEMIDE [Concomitant]
  23. RAMIPRIL [Concomitant]
  24. POTASSIUM CHLORIDE [Concomitant]
  25. ANTIVERT [Concomitant]
  26. LEVAQUIN [Concomitant]

REACTIONS (30)
  - ABDOMINAL PAIN [None]
  - ANXIETY [None]
  - APNOEA [None]
  - ARTERIOSCLEROSIS CORONARY ARTERY [None]
  - ASTHENIA [None]
  - ATRIAL FIBRILLATION [None]
  - BRADYCARDIA [None]
  - CARDIAC FAILURE CONGESTIVE [None]
  - CARDIOACTIVE DRUG LEVEL ABOVE THERAPEUTIC [None]
  - CHILLS [None]
  - CONFUSIONAL STATE [None]
  - COUGH [None]
  - DEMENTIA [None]
  - DIZZINESS [None]
  - ECONOMIC PROBLEM [None]
  - FUNGAL INFECTION [None]
  - GLOMERULAR FILTRATION RATE DECREASED [None]
  - HYPONATRAEMIA [None]
  - LETHARGY [None]
  - MULTIPLE INJURIES [None]
  - NAUSEA [None]
  - OEDEMA PERIPHERAL [None]
  - OROPHARYNGEAL PAIN [None]
  - PAIN [None]
  - PNEUMONIA [None]
  - PYREXIA [None]
  - RESTLESSNESS [None]
  - THERAPEUTIC AGENT TOXICITY [None]
  - UNEVALUABLE EVENT [None]
  - URINARY TRACT INFECTION [None]
